FAERS Safety Report 10944777 (Version 1)
Quarter: 2015Q1

REPORT INFORMATION
  Report Type: Spontaneous
  Country: IT (occurrence: None)
  Receive Date: 20150318
  Receipt Date: 20150318
  Transmission Date: 20150721
  Serious: Yes (Hospitalization)
  Sender: FDA-Public Use
  Company Number: FK201501205

PATIENT
  Age: 50 Year
  Sex: Female
  Weight: 40 kg

DRUGS (1)
  1. PROPOFOL FRESENIUS (NOT SPECIFIED) (PROPOFOL) (PROPOFOL) [Suspect]
     Active Substance: PROPOFOL
     Indication: SEDATION
     Dosage: 100 DOSAGE UNIT CYCLIC??(NOT OTHERWISE SPECIFIED)
     Route: 042
     Dates: start: 20150209, end: 20150221

REACTIONS (1)
  - Post-injection delirium sedation syndrome [None]

NARRATIVE: CASE EVENT DATE: 20150221
